FAERS Safety Report 17648220 (Version 1)
Quarter: 2020Q2

REPORT INFORMATION
  Report Type: Spontaneous
  Country: CN (occurrence: CN)
  Receive Date: 20200408
  Receipt Date: 20200408
  Transmission Date: 20200713
  Serious: No
  Sender: FDA-Public Use
  Company Number: CN-ELI_LILLY_AND_COMPANY-CN202004000447

PATIENT
  Age: 29 Year
  Sex: Female
  Weight: 45 kg

DRUGS (4)
  1. QUETIAPINE FUMARATE. [Suspect]
     Active Substance: QUETIAPINE FUMARATE
     Indication: AFFECT LABILITY
     Dosage: 100 MG, DAILY
     Route: 048
     Dates: start: 20191226, end: 20200107
  2. CYMBALTA [Suspect]
     Active Substance: DULOXETINE HYDROCHLORIDE
     Indication: DEPRESSION
     Dosage: 20 MG, DAILY
     Route: 048
     Dates: start: 20191230, end: 20200107
  3. ZOPICLONE [Suspect]
     Active Substance: ZOPICLONE
     Indication: INSOMNIA
     Dosage: 3 MG, DAILY
     Route: 048
     Dates: start: 20191226, end: 20200107
  4. LITHIUM CARBONATE. [Suspect]
     Active Substance: LITHIUM CARBONATE
     Indication: AFFECT LABILITY
     Dosage: 300 MG, DAILY
     Route: 048
     Dates: start: 20191227, end: 20200107

REACTIONS (4)
  - Rash papular [Recovered/Resolved]
  - Hepatic enzyme increased [Recovered/Resolved]
  - Erythema multiforme [Recovered/Resolved]
  - Drug eruption [Recovered/Resolved]

NARRATIVE: CASE EVENT DATE: 20200107
